FAERS Safety Report 17074530 (Version 3)
Quarter: 2020Q1

REPORT INFORMATION
  Report Type: Report from Study
  Country: US (occurrence: US)
  Receive Date: 20191126
  Receipt Date: 20200130
  Transmission Date: 20200409
  Serious: Yes (Hospitalization)
  Sender: FDA-Public Use
  Company Number: US-EISAI MEDICAL RESEARCH-EC-2019-064280

PATIENT
  Age: 56 Year
  Sex: Female
  Weight: 73.9 kg

DRUGS (11)
  1. METHADONE [Concomitant]
     Active Substance: METHADONE HYDROCHLORIDE
  2. POTASSIUM CHLORIDE. [Concomitant]
     Active Substance: POTASSIUM CHLORIDE
  3. LORAZEPAM. [Concomitant]
     Active Substance: LORAZEPAM
  4. PANTOPRAZOLE [Concomitant]
     Active Substance: PANTOPRAZOLE
  5. SERTRALINE [Concomitant]
     Active Substance: SERTRALINE HYDROCHLORIDE
  6. LEVOTHYROXINE. [Concomitant]
     Active Substance: LEVOTHYROXINE
  7. LENVIMA [Suspect]
     Active Substance: LENVATINIB
     Route: 048
  8. LENVIMA [Suspect]
     Active Substance: LENVATINIB
     Indication: UTERINE CANCER
     Route: 048
     Dates: start: 20191018, end: 20191117
  9. GABAPENTIN. [Concomitant]
     Active Substance: GABAPENTIN
  10. OXYCODONE [Concomitant]
     Active Substance: OXYCODONE
  11. TIZANIDINE. [Concomitant]
     Active Substance: TIZANIDINE

REACTIONS (9)
  - Sepsis [Unknown]
  - Gastrooesophageal reflux disease [Unknown]
  - Syncope [Unknown]
  - Pelvic abscess [Unknown]
  - Blood electrolytes decreased [Unknown]
  - Generalised anxiety disorder [Unknown]
  - Asthenia [Unknown]
  - Tumour pain [Unknown]
  - Hypotension [Unknown]

NARRATIVE: CASE EVENT DATE: 201910
